FAERS Safety Report 4626891-7 (Version None)
Quarter: 2005Q2

REPORT INFORMATION
  Report Type: 
  Country: None (occurrence: None)
  Receive Date: 20050405
  Receipt Date: 20050329
  Transmission Date: 20051028
  Serious: Yes (Other)
  Sender: FDA-Public Use
  Company Number: US-BRISTOL-MYERS SQUIBB COMPANY-12913067

PATIENT

DRUGS (1)
  1. GATIFLOXACIN [Suspect]

REACTIONS (1)
  - HYPOGLYCAEMIA [None]
